FAERS Safety Report 8582926-0 (Version None)
Quarter: 2012Q3

REPORT INFORMATION
  Report Type: 
  Country: None (occurrence: None)
  Receive Date: 20120809
  Receipt Date: 20120802
  Transmission Date: 20120928
  Serious: Yes (Congenital Anomaly, Other)
  Sender: FDA-Public Use
  Company Number: US-TEVA-351781USA

PATIENT

DRUGS (1)
  1. PROVIGIL [Suspect]
     Route: 065

REACTIONS (3)
  - HYPOTONIA [None]
  - CLEFT PALATE [None]
  - DEVELOPMENTAL DELAY [None]
